FAERS Safety Report 8409547-4 (Version None)
Quarter: 2012Q2

REPORT INFORMATION
  Report Type: 
  Country: None (occurrence: None)
  Receive Date: 20120529
  Receipt Date: 20030730
  Transmission Date: 20120825
  Serious: Yes (Life-Threatening)
  Sender: FDA-Public Use
  Company Number: JP-2012-12686

PATIENT

DRUGS (1)
  1. PLETAL [Suspect]

REACTIONS (2)
  - CARDIAC ARREST [None]
  - BRADYCARDIA [None]
